FAERS Safety Report 17732750 (Version 3)
Quarter: 2020Q2

REPORT INFORMATION
  Report Type: Report from Study
  Country: FR (occurrence: FR)
  Receive Date: 20200501
  Receipt Date: 20200620
  Transmission Date: 20200714
  Serious: Yes (Other)
  Sender: FDA-Public Use
  Company Number: NVSC2020FR115241

PATIENT
  Age: 65 Year
  Sex: Male
  Weight: 104.5 kg

DRUGS (5)
  1. ADOPORT [Suspect]
     Active Substance: TACROLIMUS
     Dosage: 6 MG
     Route: 065
     Dates: start: 20190718, end: 20190916
  2. ADOPORT [Suspect]
     Active Substance: TACROLIMUS
     Dosage: 2 MG
     Route: 065
     Dates: start: 20190718
  3. ADOPORT [Suspect]
     Active Substance: TACROLIMUS
     Indication: RENAL TRANSPLANT
     Dosage: 3 MG
     Route: 065
     Dates: start: 20190718, end: 20190916
  4. ADOPORT [Suspect]
     Active Substance: TACROLIMUS
     Dosage: 4 MG
     Route: 065
     Dates: start: 20190718, end: 20190916
  5. ADOPORT [Suspect]
     Active Substance: TACROLIMUS
     Dosage: 12 MG
     Route: 065
     Dates: start: 20190718, end: 20190916

REACTIONS (12)
  - Hypocalcaemia [Recovered/Resolved]
  - Constipation [Recovered/Resolved]
  - Hepatocellular injury [Recovered/Resolved]
  - Overdose [Recovered/Resolved]
  - Skin necrosis [Recovered/Resolved]
  - Leukopenia [Recovered/Resolved]
  - Overdose [Recovered/Resolved]
  - Hypoplastic anaemia [Recovered/Resolved]
  - Hyperkalaemia [Recovered/Resolved]
  - Delayed graft function [Recovered/Resolved]
  - Diabetes mellitus inadequate control [Not Recovered/Not Resolved]
  - Hyperphosphataemia [Recovered/Resolved]

NARRATIVE: CASE EVENT DATE: 20190718
